FAERS Safety Report 16414018 (Version 1)
Quarter: 2019Q2

REPORT INFORMATION
  Report Type: Spontaneous
  Country: US (occurrence: US)
  Receive Date: 20190611
  Receipt Date: 20190611
  Transmission Date: 20190711
  Serious: No
  Sender: FDA-Public Use
  Company Number: US-MYLANLABS-2019M1050581

PATIENT
  Sex: Female
  Weight: 44 kg

DRUGS (1)
  1. ESTRADIOL TRANSDERMAL SYSTEM [Suspect]
     Active Substance: ESTRADIOL
     Indication: HYSTERECTOMY
     Dosage: UNK UNK, BID
     Route: 062

REACTIONS (4)
  - Application site rash [Recovered/Resolved]
  - Application site urticaria [Recovered/Resolved]
  - Product adhesion issue [Recovered/Resolved]
  - Application site erythema [Recovered/Resolved]
